FAERS Safety Report 13684726 (Version 1)
Quarter: 2017Q2

REPORT INFORMATION
  Report Type: Spontaneous
  Country: US (occurrence: US)
  Receive Date: 20170623
  Receipt Date: 20170623
  Transmission Date: 20170830
  Serious: No
  Sender: FDA-Public Use
  Company Number: US-ASTELLAS-2017US018360

PATIENT
  Age: 82 Year
  Sex: Male

DRUGS (2)
  1. MYRBETRIQ [Suspect]
     Active Substance: MIRABEGRON
     Indication: URINARY INCONTINENCE
     Dosage: 25 MG, UNKNOWN FREQ. FOR A COUPLE OF MONTHS
     Route: 048
  2. VESICARE [Suspect]
     Active Substance: SOLIFENACIN SUCCINATE
     Indication: URINARY INCONTINENCE
     Dosage: 5 MG, UNKNOWN FREQ. FOR A COUPLE OF MONTHS
     Route: 048

REACTIONS (2)
  - Drug ineffective [Unknown]
  - Urinary incontinence [Unknown]
